FAERS Safety Report 6448590-1 (Version None)
Quarter: 2009Q4

REPORT INFORMATION
  Report Type: 
  Country: None (occurrence: None)
  Receive Date: 20091120
  Receipt Date: 20091110
  Transmission Date: 20100525
  Serious: Yes (Hospitalization)
  Sender: FDA-Public Use
  Company Number: NL-SANOFI-AVENTIS-2009SA000793

PATIENT
  Age: 71 Year
  Sex: Male

DRUGS (4)
  1. OXALIPLATIN [Suspect]
     Route: 041
     Dates: start: 20090309, end: 20090309
  2. OXALIPLATIN [Suspect]
     Route: 041
     Dates: start: 20090511, end: 20090511
  3. XELODA [Suspect]
     Route: 048
     Dates: start: 20090309
  4. XELODA [Suspect]
     Route: 048
     Dates: end: 20090503

REACTIONS (1)
  - ACUTE CORONARY SYNDROME [None]
